FAERS Safety Report 5127365-X (Version None)
Quarter: 2006Q4

REPORT INFORMATION
  Report Type: 
  Country: None (occurrence: None)
  Receive Date: 20061010
  Receipt Date: 20060927
  Transmission Date: 20070319
  Serious: Yes (Death, Hospitalization)
  Sender: FDA-Public Use
  Company Number: GXKR2006IL04938

PATIENT
  Age: 80 Year
  Sex: Male

DRUGS (5)
  1. DOXORUBICIN HCL [Suspect]
     Indication: NON-HODGKIN'S LYMPHOMA STAGE III
     Dosage: EVERY 21 DAYS
  2. VINCRISTINE [Suspect]
     Indication: NON-HODGKIN'S LYMPHOMA STAGE III
     Dosage: EVERY 21 DAYS
  3. PREDNISONE [Suspect]
     Indication: NON-HODGKIN'S LYMPHOMA STAGE IV
     Dosage: EVERY 21 DAYS
  4. CYCLOPHOSPHAMIDE [Suspect]
     Indication: NON-HODGKIN'S LYMPHOMA STAGE III
     Dosage: EVERY 21 DAYS
  5. RITUXIMAB (RITUXIMAB) [Suspect]
     Indication: NON-HODGKIN'S LYMPHOMA STAGE III
     Dosage: 375 MG/M??2, EVERY 21 DAYS

REACTIONS (11)
  - BIOPSY LUNG ABNORMAL [None]
  - COMPUTERISED TOMOGRAM ABNORMAL [None]
  - COUGH [None]
  - CREPITATIONS [None]
  - DYSPNOEA [None]
  - HYPOXIA [None]
  - LUNG CONSOLIDATION [None]
  - LUNG INFILTRATION [None]
  - PNEUMONITIS [None]
  - RESPIRATORY FAILURE [None]
  - TACHYPNOEA [None]
